FAERS Safety Report 8912927 (Version 1)
Quarter: 2012Q4

REPORT INFORMATION
  Report Type: 
  Country: CZ (occurrence: CZ)
  Receive Date: 20121115
  Receipt Date: 20121115
  Transmission Date: 20130627
  Serious: Yes (Life-Threatening)
  Sender: FDA-Public Use
  Company Number: CZ-CELGENEUS-217-50794-12091228

PATIENT
  Age: 57 Year
  Sex: Female

DRUGS (8)
  1. VIDAZA [Suspect]
     Indication: CHRONIC MYELOMONOCYTIC LEUKEMIA
     Dosage: 100 Milligram
     Route: 058
     Dates: start: 201111, end: 20111115
  2. HYDROXYUREA [Concomitant]
     Indication: DRUG USE FOR UNKNOWN INDICATION
     Route: 065
     Dates: start: 201110
  3. CYTARABINE [Concomitant]
     Indication: CHRONIC MYELOMONOCYTIC LEUKEMIA
     Route: 041
     Dates: start: 2010
  4. TENORMIN [Concomitant]
     Indication: HYPERTENSION
     Route: 065
  5. ENAP [Concomitant]
     Indication: HYPERTENSION
     Route: 065
  6. CALTRATE PLUS [Concomitant]
     Indication: OSTEOPOROSIS
     Route: 065
  7. LEXAURIN [Concomitant]
     Indication: ANTIDEPRESSANT THERAPY
     Route: 065
     Dates: start: 201111, end: 201202
  8. ASCORUTIN [Concomitant]
     Indication: THROMBOPENIA
     Route: 065
     Dates: start: 201111, end: 201202

REACTIONS (2)
  - Acute myeloid leukaemia [Recovered/Resolved]
  - Erythema [Recovered/Resolved]
